FAERS Safety Report 7410260-0 (Version None)
Quarter: 2011Q2

REPORT INFORMATION
  Report Type: 
  Country: None (occurrence: None)
  Receive Date: 20110412
  Receipt Date: 20110331
  Transmission Date: 20111010
  Serious: Yes (Other)
  Sender: FDA-Public Use
  Company Number: PHHY2011US28388

PATIENT
  Sex: Female

DRUGS (1)
  1. RECLAST [Suspect]
     Indication: OSTEOPOROSIS POSTMENOPAUSAL
     Dosage: 5 MG, ANNUALLY
     Route: 042
     Dates: start: 20110118

REACTIONS (3)
  - HYPERLIPIDAEMIA [None]
  - HYPERTENSION [None]
  - BLOOD URINE PRESENT [None]
